FAERS Safety Report 25181041 (Version 3)
Quarter: 2025Q2

REPORT INFORMATION
  Report Type: Spontaneous
  Country: IT (occurrence: IT)
  Receive Date: 20250410
  Receipt Date: 20250424
  Transmission Date: 20250717
  Serious: Yes (Life-Threatening, Hospitalization, Other)
  Sender: AUROBINDO
  Company Number: IT-DSJP-DS-2025-132352-IT

PATIENT
  Age: 71 Year

DRUGS (1)
  1. OLMESARTAN [Suspect]
     Active Substance: OLMESARTAN
     Indication: Hypertension
     Route: 065

REACTIONS (6)
  - Acute kidney injury [Recovering/Resolving]
  - Autoimmune enteropathy [Recovering/Resolving]
  - Multiple organ dysfunction syndrome [Recovering/Resolving]
  - Systemic candida [Recovering/Resolving]
  - Malnutrition [Recovering/Resolving]
  - Atrophy [Recovered/Resolved]
